FAERS Safety Report 11827063 (Version 1)
Quarter: 2015Q4

REPORT INFORMATION
  Report Type: Report from Study
  Country: FR (occurrence: FR)
  Receive Date: 20151211
  Receipt Date: 20151211
  Transmission Date: 20160305
  Serious: Yes (Other)
  Sender: FDA-Public Use
  Company Number: FR-BAXTER-2015BAX066819

PATIENT
  Age: 79 Year
  Sex: Female

DRUGS (1)
  1. ENDOXAN 1000 MG, POUDRE POUR SOLUTION INJECTABLE [Suspect]
     Active Substance: CYCLOPHOSPHAMIDE
     Indication: LARYNGEAL STENOSIS
     Route: 042

REACTIONS (2)
  - Acute respiratory distress syndrome [Unknown]
  - Laryngeal stenosis [Unknown]
